FAERS Safety Report 22374729 (Version 1)
Quarter: 2023Q2

REPORT INFORMATION
  Report Type: Spontaneous
  Country: BG (occurrence: BG)
  Receive Date: 20230526
  Receipt Date: 20230526
  Transmission Date: 20230721
  Serious: Yes (Other)
  Sender: FDA-Public Use
  Company Number: BG-ANIPHARMA-2023-BG-000003

PATIENT
  Age: 67 Year
  Sex: Female

DRUGS (1)
  1. CANDESARTAN CILEXETIL [Suspect]
     Active Substance: CANDESARTAN CILEXETIL
     Indication: Hypertension
     Dosage: 16 MG DAILY

REACTIONS (4)
  - Malignant melanoma stage I [Unknown]
  - Dysplastic naevus [Unknown]
  - Product contamination chemical [Unknown]
  - Treatment noncompliance [Unknown]
